FAERS Safety Report 4602227-2 (Version None)
Quarter: 2005Q2

REPORT INFORMATION
  Report Type: 
  Country: None (occurrence: None)
  Receive Date: 20050215
  Receipt Date: 20041013
  Transmission Date: 20051028
  Serious: Yes (Other)
  Sender: FDA-Public Use
  Company Number: 10063712-G57W5-1

PATIENT
  Age: 81 Year
  Sex: Female

DRUGS (5)
  1. AHF7124 - 0.9% SODIUM CHLORIDE IRRIGATION, USP [Suspect]
     Indication: FLUSHING
     Dosage: INHALATION
     Route: 055
  2. MS CONTIN [Concomitant]
  3. LOSED [Concomitant]
  4. PROZAC [Concomitant]
  5. BISOLVIN [Concomitant]

REACTIONS (2)
  - COUGH [None]
  - THROAT IRRITATION [None]
